FAERS Safety Report 4486538-X (Version None)
Quarter: 2004Q4

REPORT INFORMATION
  Report Type: 
  Country: None (occurrence: None)
  Receive Date: 20041021
  Receipt Date: 20041014
  Transmission Date: 20050328
  Serious: Yes (Hospitalization)
  Sender: FDA-Public Use
  Company Number: STA-AE-04-MTX-291

PATIENT
  Age: 76 Year
  Sex: Female

DRUGS (7)
  1. RHEUMATREX [Suspect]
     Indication: RHEUMATOID ARTHRITIS
     Dosage: 4 MG 1X PER 1 WK, ORAL
     Route: 048
     Dates: start: 20021210, end: 20030302
  2. RHEUMATREX [Suspect]
     Indication: RHEUMATOID ARTHRITIS
     Dosage: 6 MG 1X PER 1 WK, ORAL
     Route: 048
     Dates: start: 20030303, end: 20030624
  3. RHEUMATREX [Suspect]
     Indication: RHEUMATOID ARTHRITIS
     Dosage: 4 MG 1X PER 1 WK, ORAL
     Route: 048
     Dates: start: 20030625, end: 20030630
  4. AZULFIDINE [Concomitant]
  5. LOXONIN      ( LOXOPROFEN SODIUM) [Concomitant]
  6. PREDNISOLONE [Concomitant]
  7. WARFARIN SODIUM [Concomitant]

REACTIONS (4)
  - BACK PAIN [None]
  - BREAST MASS [None]
  - DISSEMINATED LARGE CELL LYMPHOMA [None]
  - LYMPH NODE CANCER METASTATIC [None]
